FAERS Safety Report 7279688-6 (Version None)
Quarter: 2011Q1

REPORT INFORMATION
  Report Type: 
  Country: None (occurrence: None)
  Receive Date: 20110208
  Receipt Date: 20110203
  Transmission Date: 20110831
  Serious: Yes (Death, Hospitalization, Other)
  Sender: FDA-Public Use
  Company Number: US-ASTELLAS-2011US000498

PATIENT

DRUGS (3)
  1. PROGRAF [Suspect]
     Indication: GRAFT VERSUS HOST DISEASE
     Dosage: UNK
     Route: 065
  2. PREDNISONE [Concomitant]
     Indication: PROPHYLAXIS AGAINST GRAFT VERSUS HOST DISEASE
  3. PREDNISONE [Concomitant]
     Indication: GRAFT VERSUS HOST DISEASE
     Dosage: 1 MG/KG, QOD
     Route: 065

REACTIONS (3)
  - H1N1 INFLUENZA [None]
  - OFF LABEL USE [None]
  - RESPIRATORY FAILURE [None]
